FAERS Safety Report 15793024 (Version 3)
Quarter: 2019Q1

REPORT INFORMATION
  Report Type: Spontaneous
  Country: US (occurrence: US)
  Receive Date: 20190107
  Receipt Date: 20190314
  Transmission Date: 20190417
  Serious: No
  Sender: FDA-Public Use
  Company Number: US-TEVA-2018-US-994336

PATIENT
  Age: 96 Year
  Sex: Male

DRUGS (1)
  1. MUPIROCIN. [Suspect]
     Active Substance: MUPIROCIN
     Indication: PROMOTION OF WOUND HEALING
     Route: 061
     Dates: start: 201811, end: 20181130

REACTIONS (9)
  - Chills [Recovered/Resolved]
  - Diarrhoea [Recovered/Resolved]
  - Auditory disorder [Recovered/Resolved]
  - Swelling face [Recovered/Resolved]
  - Body temperature increased [Recovered/Resolved]
  - Dysphonia [Recovered/Resolved]
  - Hearing aid user [Recovered/Resolved]
  - Dry throat [Recovered/Resolved]
  - Cough [Recovered/Resolved]

NARRATIVE: CASE EVENT DATE: 201811
